FAERS Safety Report 5684484-7 (Version None)
Quarter: 2008Q1

REPORT INFORMATION
  Report Type: 
  Country: None (occurrence: None)
  Receive Date: 20080328
  Receipt Date: 20080320
  Transmission Date: 20080703
  Serious: Yes (Death)
  Sender: FDA-Public Use
  Company Number: PHHO2007SK12587

PATIENT
  Age: 30 Year
  Sex: Male
  Weight: 58 kg

DRUGS (2)
  1. CERTICAN [Suspect]
     Indication: RENAL TRANSPLANT
     Dosage: 0.75 MG, BID
     Route: 048
     Dates: start: 20070714, end: 20070729
  2. NEORAL [Suspect]
     Indication: RENAL TRANSPLANT
     Dosage: 175 MG, BID
     Route: 048

REACTIONS (5)
  - CARDIOPULMONARY FAILURE [None]
  - DYSPNOEA [None]
  - MECHANICAL VENTILATION [None]
  - PNEUMONIA [None]
  - PYREXIA [None]
